FAERS Safety Report 5075592-2 (Version None)
Quarter: 2006Q3

REPORT INFORMATION
  Report Type: 
  Country: None (occurrence: None)
  Receive Date: 20060809
  Receipt Date: 20060803
  Transmission Date: 20061208
  Serious: Yes (Other)
  Sender: FDA-Public Use
  Company Number: ES-ROCHE-457957

PATIENT
  Age: 55 Year
  Sex: Female

DRUGS (1)
  1. ANTALGIN [Suspect]
     Indication: PAIN
     Route: 048
     Dates: start: 20060728, end: 20060728

REACTIONS (1)
  - HYPOAESTHESIA ORAL [None]
